FAERS Safety Report 25609451 (Version 1)
Quarter: 2025Q3

REPORT INFORMATION
  Report Type: Report from Study
  Country: US (occurrence: US)
  Receive Date: 20250727
  Receipt Date: 20250727
  Transmission Date: 20251020
  Serious: Yes (Other)
  Sender: ALEXION PHARMACEUTICALS
  Company Number: US-AstraZeneca-CH-00915289A

PATIENT
  Sex: Female

DRUGS (1)
  1. ANIFROLUMAB [Suspect]
     Active Substance: ANIFROLUMAB
     Route: 065

REACTIONS (6)
  - Ill-defined disorder [Unknown]
  - Postural orthostatic tachycardia syndrome [Unknown]
  - Dizziness [Unknown]
  - Syncope [Unknown]
  - Vagus nerve disorder [Unknown]
  - Dizziness postural [Unknown]
